FAERS Safety Report 14988829 (Version 1)
Quarter: 2018Q2

REPORT INFORMATION
  Report Type: Spontaneous
  Country: US (occurrence: US)
  Receive Date: 20180608
  Receipt Date: 20180608
  Transmission Date: 20180711
  Serious: No
  Sender: FDA-Public Use
  Company Number: US-ASTRAZENECA-2018SE63785

PATIENT
  Sex: Female

DRUGS (1)
  1. BYDUREON [Suspect]
     Active Substance: EXENATIDE
     Route: 065
     Dates: start: 20180510

REACTIONS (5)
  - Lacrimation increased [Unknown]
  - Device malfunction [Unknown]
  - Product label confusion [Unknown]
  - Hypersensitivity [Unknown]
  - Visual impairment [Unknown]
